FAERS Safety Report 7767504-5 (Version None)
Quarter: 2011Q3

REPORT INFORMATION
  Report Type: 
  Country: None (occurrence: None)
  Receive Date: 20110922
  Receipt Date: 20110816
  Transmission Date: 20111222
  Serious: Yes (Hospitalization, Other)
  Sender: FDA-Public Use
  Company Number: BE-UCBSA-032953

PATIENT
  Sex: Male

DRUGS (4)
  1. KEPPRA [Suspect]
     Indication: EPILEPSY
  2. KEPPRA [Suspect]
     Dates: start: 20110501
  3. NO CONCOMITANT MEDICATION [Concomitant]
  4. KEPPRA [Suspect]
     Dates: start: 20110501, end: 20110517

REACTIONS (3)
  - MYOGLOBIN BLOOD INCREASED [None]
  - CONVULSION [None]
  - BLOOD CREATINE PHOSPHOKINASE INCREASED [None]
